FAERS Safety Report 15851099 (Version 1)
Quarter: 2019Q1

REPORT INFORMATION
  Report Type: Spontaneous
  Country: US (occurrence: US)
  Receive Date: 20190122
  Receipt Date: 20190122
  Transmission Date: 20190417
  Serious: Yes (Life-Threatening)
  Sender: FDA-Public Use
  Company Number: US-ROCHE-2237278

PATIENT
  Age: 58 Year
  Sex: Female
  Weight: 57.4 kg

DRUGS (11)
  1. OCREVUS [Suspect]
     Active Substance: OCRELIZUMAB
     Dosage: THIRD HALF DOSE
     Route: 042
     Dates: start: 20180302
  2. OCREVUS [Suspect]
     Active Substance: OCRELIZUMAB
     Dosage: FIFTH HALF DOSE
     Route: 042
     Dates: start: 20180906
  3. OCREVUS [Suspect]
     Active Substance: OCRELIZUMAB
     Dosage: FOURTH HALF DOSE
     Route: 042
     Dates: start: 20180319
  4. TRIAMCINOLONE [Concomitant]
     Active Substance: TRIAMCINOLONE
     Dosage: ONGOING: YES
     Route: 065
  5. GABAPENTIN. [Concomitant]
     Active Substance: GABAPENTIN
     Dosage: 4X A DAY FOR 3 DAYS; AND 3X A DAY AS NEEDED ;ONGOING: YES
     Route: 048
  6. OCREVUS [Suspect]
     Active Substance: OCRELIZUMAB
     Dosage: SECOND HALF DOSE
     Route: 042
     Dates: start: 20170815
  7. BACLOFEN. [Concomitant]
     Active Substance: BACLOFEN
     Dosage: ONGOING: YES
     Route: 048
  8. OCREVUS [Suspect]
     Active Substance: OCRELIZUMAB
     Dosage: SIXTH HALF DOSE
     Route: 042
     Dates: start: 20180921
  9. VITAMIN D3 [Concomitant]
     Active Substance: CHOLECALCIFEROL
     Dosage: 5000 UNITS ;ONGOING: YES
     Route: 048
  10. VITAMIN B12 [Concomitant]
     Active Substance: CYANOCOBALAMIN
     Dosage: 5000 UNITS ;ONGOING: YES
     Route: 048
  11. OCREVUS [Suspect]
     Active Substance: OCRELIZUMAB
     Indication: RELAPSING-REMITTING MULTIPLE SCLEROSIS
     Dosage: FIRST HALF DOSE ONGOING :YES DAY 1*15*3
     Route: 042
     Dates: start: 20170731

REACTIONS (1)
  - Eczema asteatotic [Not Recovered/Not Resolved]

NARRATIVE: CASE EVENT DATE: 20181031
